FAERS Safety Report 8110792-6 (Version None)
Quarter: 2012Q1

REPORT INFORMATION
  Report Type: 
  Country: None (occurrence: None)
  Receive Date: 20120203
  Receipt Date: 20120123
  Transmission Date: 20120608
  Serious: No
  Sender: FDA-Public Use
  Company Number: US-JNJFOC-20120110356

PATIENT
  Sex: Female
  Weight: 91.63 kg

DRUGS (2)
  1. REMICADE [Suspect]
     Indication: CROHN'S DISEASE
     Route: 042
     Dates: start: 20101201, end: 20111108
  2. PROGESTERONE [Concomitant]
     Indication: CONTRACEPTION
     Route: 048

REACTIONS (5)
  - PAIN [None]
  - NONSPECIFIC REACTION [None]
  - URINARY TRACT INFECTION [None]
  - ANTINUCLEAR ANTIBODY INCREASED [None]
  - CROHN'S DISEASE [None]
